FAERS Safety Report 4693624-8 (Version None)
Quarter: 2005Q2

REPORT INFORMATION
  Report Type: 
  Country: None (occurrence: None)
  Receive Date: 20050616
  Receipt Date: 20050301
  Transmission Date: 20051028
  Serious: Yes (Death)
  Sender: FDA-Public Use
  Company Number: 26350

PATIENT
  Age: 4 Week

DRUGS (1)
  1. THEOPHYLLINE [Suspect]
     Dosage: ORAL
     Route: 048
     Dates: start: 20050201, end: 20050228

REACTIONS (1)
  - NEONATAL RESPIRATORY FAILURE [None]
